FAERS Safety Report 8813720 (Version 2)
Quarter: 2012Q4

REPORT INFORMATION
  Report Type: Report from Study
  Country: FR (occurrence: FR)
  Receive Date: 20120928
  Receipt Date: 20121129
  Transmission Date: 20130627
  Serious: Yes (Hospitalization, Disabling)
  Sender: FDA-Public Use
  Company Number: FR-ROCHE-1134303

PATIENT
  Age: 65 Year
  Sex: Male
  Weight: 100 kg

DRUGS (3)
  1. TENECTEPLASE [Suspect]
     Indication: PULMONARY EMBOLISM
     Route: 065
  2. BLINDED TENECTEPLASE [Suspect]
     Indication: PULMONARY EMBOLISM
     Route: 065
     Dates: start: 20120309, end: 20120309
  3. HEPARIN [Suspect]
     Indication: PULMONARY EMBOLISM
     Route: 065
     Dates: start: 20120309

REACTIONS (3)
  - Extradural haematoma [Recovered/Resolved with Sequelae]
  - Hemiplegia [Recovered/Resolved with Sequelae]
  - Hemiparesis [Recovered/Resolved with Sequelae]
